FAERS Safety Report 10930560 (Version 1)
Quarter: 2015Q1

REPORT INFORMATION
  Report Type: Spontaneous
  Country: US (occurrence: None)
  Receive Date: 20150318
  Receipt Date: 20150318
  Transmission Date: 20150721
  Serious: Yes (Hospitalization)
  Sender: FDA-Public Use
  Company Number: None

PATIENT
  Age: 73 Year
  Sex: Male
  Weight: 48.5 kg

DRUGS (12)
  1. CHOLECALCIFEROL [Concomitant]
     Active Substance: CHOLECALCIFEROL
  2. PROMETHAZINE [Concomitant]
     Active Substance: PROMETHAZINE\PROMETHAZINE HYDROCHLORIDE
  3. ACYCLOVIR. [Concomitant]
     Active Substance: ACYCLOVIR
  4. SIROLIMUS 2 MG [Suspect]
     Active Substance: SIROLIMUS
     Indication: PLASMA CELL MYELOMA
     Dosage: 12 MG D-2, 4 MG DAY -1TO4 QD ORAL
     Route: 048
     Dates: start: 20150121, end: 20150126
  5. OMEPRAZOLE. [Concomitant]
     Active Substance: OMEPRAZOLE
  6. SENNA-DOCUSATE [Concomitant]
  7. ONDANSETRON [Concomitant]
     Active Substance: ONDANSETRON
  8. LORAZEPAM. [Concomitant]
     Active Substance: LORAZEPAM
  9. CALCIUM CARBONATE-VITAMIN D3 [Concomitant]
  10. OXYCODONE [Concomitant]
     Active Substance: OXYCODONE
  11. HYDROXYCHLOROQUINE 200 MG [Suspect]
     Active Substance: HYDROXYCHLOROQUINE
     Indication: PLASMA CELL MYELOMA
     Route: 048
     Dates: start: 20150127, end: 20150212
  12. POLYETHYLENE GLYCOL [Concomitant]
     Active Substance: POLYETHYLENE GLYCOLS

REACTIONS (9)
  - Somnolence [None]
  - Fatigue [None]
  - Sensory disturbance [None]
  - Spinal compression fracture [None]
  - Thrombocytopenia [None]
  - Back pain [None]
  - Abdominal pain [None]
  - Chronic kidney disease [None]
  - Acute kidney injury [None]

NARRATIVE: CASE EVENT DATE: 20150306
